FAERS Safety Report 13319376 (Version 1)
Quarter: 2017Q1

REPORT INFORMATION
  Report Type: Spontaneous
  Country: US (occurrence: US)
  Receive Date: 20170309
  Receipt Date: 20170309
  Transmission Date: 20170428
  Serious: Yes (Hospitalization)
  Sender: FDA-Public Use
  Company Number: None

PATIENT
  Age: 21 Year
  Sex: Male

DRUGS (21)
  1. ORKAMBI [Suspect]
     Active Substance: IVACAFTOR\LUMACAFTOR
     Indication: CYSTIC FIBROSIS
     Route: 048
     Dates: start: 201609
  2. VITAMIN D3 [Concomitant]
     Active Substance: CHOLECALCIFEROL
  3. POLYETH GLYC [Concomitant]
     Active Substance: POLYETHYLENE GLYCOLS
  4. VITAMIN E [Concomitant]
     Active Substance: .ALPHA.-TOCOPHEROL
  5. LINEZOLID. [Concomitant]
     Active Substance: LINEZOLID
  6. LORATADINE. [Concomitant]
     Active Substance: LORATADINE
  7. RANITIDINE. [Concomitant]
     Active Substance: RANITIDINE
  8. URSODIOL. [Concomitant]
     Active Substance: URSODIOL
  9. LEVOFLOXACIN. [Concomitant]
     Active Substance: LEVOFLOXACIN
  10. PROCTOZONE [Concomitant]
     Active Substance: HYDROCORTISONE
  11. QVAR [Concomitant]
     Active Substance: BECLOMETHASONE DIPROPIONATE
  12. AQUADEKS [Concomitant]
     Active Substance: MINERALS\VITAMINS
  13. AZITHROMYCIN ANHYDROUS. [Concomitant]
     Active Substance: AZITHROMYCIN ANHYDROUS
  14. PULMOZYME [Concomitant]
     Active Substance: DORNASE ALFA
  15. SMZ/TMP [Concomitant]
     Active Substance: SULFAMETHOXAZOLE\TRIMETHOPRIM
  16. CYPROHEPTAD [Concomitant]
  17. FLUCONAZOLE. [Concomitant]
     Active Substance: FLUCONAZOLE
  18. CAYSTON [Concomitant]
     Active Substance: AZTREONAM
  19. TOBI PODHALER [Suspect]
     Active Substance: TOBRAMYCIN
     Indication: CYSTIC FIBROSIS
     Dosage: 4 CAPS BID EVERY MO. INHALED
     Route: 048
     Dates: start: 201602
  20. CREON [Concomitant]
     Active Substance: PANCRELIPASE AMYLASE\PANCRELIPASE LIPASE\PANCRELIPASE PROTEASE
  21. PEDIASURE [Concomitant]
     Active Substance: VITAMINS

REACTIONS (1)
  - Hospitalisation [None]

NARRATIVE: CASE EVENT DATE: 20170303
